FAERS Safety Report 4356471-2 (Version None)
Quarter: 2004Q2

REPORT INFORMATION
  Report Type: 
  Country: None (occurrence: None)
  Receive Date: 20040512
  Receipt Date: 20040309
  Transmission Date: 20050107
  Serious: Yes (Hospitalization)
  Sender: FDA-Public Use
  Company Number: 200413060GDDC

PATIENT
  Age: 81 Year
  Sex: Female

DRUGS (4)
  1. NATRILIX [Suspect]
     Indication: DRUG USE FOR UNKNOWN INDICATION
     Route: 048
  2. ATACAND [Concomitant]
  3. ASPIRIN [Concomitant]
  4. LOSEC [Concomitant]

REACTIONS (8)
  - ACETABULUM FRACTURE [None]
  - ASTHENIA [None]
  - BALANCE DISORDER [None]
  - BLOOD CHLORIDE DECREASED [None]
  - CONFUSIONAL STATE [None]
  - FALL [None]
  - INAPPROPRIATE ANTIDIURETIC HORMONE SECRETION [None]
  - WATER INTOXICATION [None]
